FAERS Safety Report 4893128-3 (Version None)
Quarter: 2005Q4

REPORT INFORMATION
  Report Type: 
  Country: None (occurrence: None)
  Receive Date: 20051223
  Receipt Date: 20050930
  Transmission Date: 20060501
  Serious: Yes (Other)
  Sender: FDA-Public Use
  Company Number: PHEH2005US09909

PATIENT
  Age: 42 Year
  Sex: Male

DRUGS (23)
  1. CLOZARIL [Suspect]
     Dosage: 300MG QAM + QHS, 200MG Q12PM, ORAL
     Route: 048
  2. HYDROXYZINE [Concomitant]
  3. FERROMAX (FERROUS SULFATE) [Concomitant]
  4. CLARITIN [Concomitant]
  5. MULTIVITAMINS AND IRON (NO INGREDIENTS/SUBSTANCES) [Concomitant]
  6. PREVACID [Concomitant]
  7. LOTRISONE [Concomitant]
  8. LITHIUM CARBONATE [Concomitant]
  9. DOCUSATE CALCIUM (DOCUSATE CALCIUM) [Concomitant]
  10. NAPROXEN [Concomitant]
  11. TRIAMCINOLONE ACETONIDE W/NYSTATIN (NYSTATIN, TRIAMCINOLONE ACETONIDE) [Concomitant]
  12. NORVASC [Concomitant]
  13. RISPERDAL [Concomitant]
  14. TRIAMTERENE AND HYDROCHLORITHAIZID (HYDROCHLOROTHIAZIDE, TRIAMTERENE) [Concomitant]
  15. PROTONIX [Concomitant]
  16. CLARINEX (LORATADINE, PSEUDOEPHEDRINE SULFATE) [Concomitant]
  17. SELENIUM SULFIDE (SELENIUM SULFIDE) SHAMPOO [Concomitant]
  18. ATARAX [Concomitant]
  19. SERENTIL [Concomitant]
  20. LITHOBID [Concomitant]
  21. DILANTIN [Concomitant]
  22. VASOTEC [Concomitant]
  23. TRAZODONE HCL [Concomitant]

REACTIONS (13)
  - ANAEMIA [None]
  - ANOREXIA [None]
  - ARTHRALGIA [None]
  - BLOOD CHOLESTEROL INCREASED [None]
  - CONTUSION [None]
  - CONVULSION [None]
  - DERMATITIS [None]
  - HYPERTENSION [None]
  - INFECTION [None]
  - NAUSEA [None]
  - RASH [None]
  - VERTIGO [None]
  - VOMITING [None]
